FAERS Safety Report 6009978-6 (Version None)
Quarter: 2008Q4

REPORT INFORMATION
  Report Type: 
  Country: None (occurrence: None)
  Receive Date: 20081215
  Receipt Date: 20081127
  Transmission Date: 20090506
  Serious: Yes (Hospitalization)
  Sender: FDA-Public Use
  Company Number: 14433114

PATIENT
  Age: 31 Year
  Sex: Female

DRUGS (8)
  1. CEFADROXIL MONOHYDRATE [Suspect]
     Indication: PROPHYLAXIS
     Dosage: ORAL
     Route: 048
  2. CARBIMAZOLE [Suspect]
     Indication: BASEDOW'S DISEASE
     Dosage: 5 MILLLIGRAM 1 DAY
  3. ENOXAPARIN SODIUM [Suspect]
     Indication: THROMBOSIS PROPHYLAXIS
     Dosage: 40 MILLIGRAM 1/1 DAY
  4. DIGOXIN [Suspect]
     Indication: ATRIAL FIBRILLATION
  5. METRONIDAZOLE [Suspect]
     Indication: PROPHYLAXIS
  6. PREDNISOLONE [Suspect]
     Dosage: 40 MILLIGRAM 1/1 D
  7. PROPRANOLOL HCL [Suspect]
     Indication: BASEDOW'S DISEASE
     Dosage: 10 MILLIGRAM 3/1 DAY
  8. PROPYL-THIOURACIL [Suspect]
     Indication: BASEDOW'S DISEASE

REACTIONS (19)
  - ABORTION INDUCED [None]
  - ALANINE AMINOTRANSFERASE INCREASED [None]
  - ANTEPARTUM HAEMORRHAGE [None]
  - ATRIAL FIBRILLATION [None]
  - BODY TEMPERATURE INCREASED [None]
  - DRUG EXPOSURE DURING PREGNANCY [None]
  - DYSPHAGIA [None]
  - GOITRE [None]
  - HEART RATE INCREASED [None]
  - HYPEREMESIS GRAVIDARUM [None]
  - HYPERTHYROIDISM [None]
  - LEUKOPENIA [None]
  - NEUTROPENIA [None]
  - PHARYNGITIS [None]
  - PREGNANCY [None]
  - RASH [None]
  - RASH PRURITIC [None]
  - THROMBOCYTOPENIA [None]
  - URINARY TRACT INFECTION [None]
